FAERS Safety Report 9041149 (Version 1)
Quarter: 2013Q1

REPORT INFORMATION
  Report Type: Spontaneous
  Country: US (occurrence: None)
  Receive Date: 20130124
  Receipt Date: 20130124
  Transmission Date: 20140127
  Serious: Yes (Hospitalization, Disabling)
  Sender: FDA-Public Use
  Company Number: None

PATIENT
  Age: 44 Year
  Sex: Female
  Weight: 62.14 kg

DRUGS (1)
  1. BOTOX [Suspect]
     Dosage: 21 UNIT
     Dates: start: 20121121

REACTIONS (12)
  - Sensation of pressure [None]
  - Headache [None]
  - Influenza like illness [None]
  - Oropharyngeal pain [None]
  - Cough [None]
  - Dyspnoea [None]
  - Night sweats [None]
  - Heart rate irregular [None]
  - Muscle spasms [None]
  - Dry mouth [None]
  - Dysphagia [None]
  - Weight decreased [None]
